FAERS Safety Report 5857561-5 (Version None)
Quarter: 2008Q3

REPORT INFORMATION
  Report Type: 
  Country: None (occurrence: None)
  Receive Date: 20080825
  Receipt Date: 20080825
  Transmission Date: 20090109
  Serious: No
  Sender: FDA-Public Use
  Company Number: None

PATIENT
  Age: 59 Year
  Sex: Female
  Weight: 66.2252 kg

DRUGS (1)
  1. LYRICA [Suspect]
     Indication: FIBROMYALGIA
     Dosage: ONE DAILY PO
     Route: 048
     Dates: start: 20080404, end: 20080609

REACTIONS (3)
  - ANORGASMIA [None]
  - POLLAKIURIA [None]
  - URINARY INCONTINENCE [None]
